FAERS Safety Report 7228170-0 (Version None)
Quarter: 2011Q1

REPORT INFORMATION
  Report Type: 
  Country: None (occurrence: None)
  Receive Date: 20110114
  Receipt Date: 20110110
  Transmission Date: 20110831
  Serious: Yes (Other)
  Sender: FDA-Public Use
  Company Number: FR-PFIZER INC-2011005437

PATIENT
  Sex: Female
  Weight: 2.4 kg

DRUGS (4)
  1. FLUOROURACIL [Suspect]
     Dosage: 790 MG
     Route: 064
     Dates: start: 20100713, end: 20100914
  2. FARMORUBICINE [Suspect]
     Dosage: 160 MG
     Route: 064
     Dates: start: 20100713, end: 20100914
  3. TAXOL [Suspect]
     Dosage: 80 MG/M2
     Route: 064
     Dates: start: 20101012, end: 20101026
  4. ENDOXAN [Suspect]
     Dosage: 790 MG
     Route: 064
     Dates: start: 20100713, end: 20100914

REACTIONS (3)
  - DRUG EXPOSURE DURING PREGNANCY [None]
  - HYPOGLYCAEMIA NEONATAL [None]
  - FOETAL DISORDER [None]
